FAERS Safety Report 7742012-6 (Version None)
Quarter: 2011Q3

REPORT INFORMATION
  Report Type: 
  Country: None (occurrence: None)
  Receive Date: 20110907
  Receipt Date: 20110907
  Transmission Date: 20111222
  Serious: No
  Sender: FDA-Public Use
  Company Number: None

PATIENT
  Sex: Female
  Weight: 47.6277 kg

DRUGS (1)
  1. TRAVATAN [Suspect]
     Indication: INTRAOCULAR PRESSURE INCREASED
     Dosage: 1 DROP DAILY OCULAR
     Route: 031
     Dates: start: 20100901, end: 20110831

REACTIONS (3)
  - POLLAKIURIA [None]
  - BLOOD URINE PRESENT [None]
  - MICTURITION URGENCY [None]
